FAERS Safety Report 13346800 (Version 1)
Quarter: 2017Q1

REPORT INFORMATION
  Report Type: Spontaneous
  Country: US (occurrence: US)
  Receive Date: 20170317
  Receipt Date: 20170317
  Transmission Date: 20170428
  Serious: No
  Sender: FDA-Public Use
  Company Number: US-PERRIGO-16US015690

PATIENT
  Sex: Male
  Weight: 81.63 kg

DRUGS (1)
  1. NICOTINE POLACRILEX [Suspect]
     Active Substance: NICOTINE
     Indication: NICOTINE DEPENDENCE
     Dosage: 4 TO 8 MG, PRN
     Route: 002
     Dates: start: 2014

REACTIONS (4)
  - Incorrect dose administered [Not Recovered/Not Resolved]
  - Hiccups [Recovered/Resolved]
  - Wrong technique in product usage process [Not Recovered/Not Resolved]
  - Therapeutic response unexpected [Not Recovered/Not Resolved]

NARRATIVE: CASE EVENT DATE: 2014
